FAERS Safety Report 7751357-5 (Version None)
Quarter: 2011Q3

REPORT INFORMATION
  Report Type: 
  Country: None (occurrence: None)
  Receive Date: 20110914
  Receipt Date: 20110830
  Transmission Date: 20111222
  Serious: No
  Sender: FDA-Public Use
  Company Number: CA-ELI_LILLY_AND_COMPANY-CA201108008893

PATIENT
  Sex: Male

DRUGS (4)
  1. CLOPIXOL [Concomitant]
  2. DIAZEPAM [Concomitant]
  3. ZYPREXA [Suspect]
     Indication: SCHIZOPHRENIA
     Dosage: 10 MG, UNKNOWN
  4. FLUOXETINE [Concomitant]

REACTIONS (9)
  - RESPIRATORY TRACT INFECTION [None]
  - BLOOD TRIGLYCERIDES INCREASED [None]
  - BLOOD CHOLESTEROL INCREASED [None]
  - DIABETES MELLITUS [None]
  - OTITIS EXTERNA [None]
  - OVERDOSE [None]
  - HAEMOGLOBIN ABNORMAL [None]
  - BLOOD DISORDER [None]
  - HEARING IMPAIRED [None]
